FAERS Safety Report 13932954 (Version 1)
Quarter: 2017Q3

REPORT INFORMATION
  Report Type: Spontaneous
  Country: ES (occurrence: ES)
  Receive Date: 20170904
  Receipt Date: 20170904
  Transmission Date: 20171127
  Serious: Yes (Hospitalization, Other)
  Sender: FDA-Public Use
  Company Number: ES-JNJFOC-20170828293

PATIENT
  Age: 36 Year
  Sex: Female

DRUGS (2)
  1. REMICADE [Suspect]
     Active Substance: INFLIXIMAB
     Indication: COLITIS ULCERATIVE
     Route: 042
     Dates: start: 20150922, end: 201511
  2. IMUREL [Suspect]
     Active Substance: AZATHIOPRINE SODIUM
     Indication: COLITIS ULCERATIVE
     Route: 065
     Dates: start: 20150918, end: 201511

REACTIONS (7)
  - Hyponatraemia [Unknown]
  - Abdominal pain [Unknown]
  - Faecal calprotectin [Recovering/Resolving]
  - Intestinal stenosis [Unknown]
  - Anal fistula [Recovered/Resolved]
  - Anal abscess [Unknown]
  - Vomiting [Unknown]

NARRATIVE: CASE EVENT DATE: 201511
